FAERS Safety Report 11732538 (Version 1)
Quarter: 2015Q4

REPORT INFORMATION
  Report Type: Spontaneous
  Country: US (occurrence: US)
  Receive Date: 20151113
  Receipt Date: 20151113
  Transmission Date: 20160304
  Serious: Yes (Hospitalization)
  Sender: FDA-Public Use
  Company Number: US-ROCHE-1600886

PATIENT
  Age: 84 Year
  Sex: Male
  Weight: 88.53 kg

DRUGS (7)
  1. ESBRIET [Suspect]
     Active Substance: PIRFENIDONE
     Indication: IDIOPATHIC PULMONARY FIBROSIS
     Route: 048
     Dates: start: 20150611
  2. ESBRIET [Suspect]
     Active Substance: PIRFENIDONE
     Dosage: 2 TABLETS
     Route: 048
     Dates: start: 20151005
  3. ESBRIET [Suspect]
     Active Substance: PIRFENIDONE
     Dosage: 1 TABLET
     Route: 048
     Dates: end: 20151015
  4. SYMBICORT [Concomitant]
     Active Substance: BUDESONIDE\FORMOTEROL FUMARATE DIHYDRATE
  5. PREDNISONE. [Concomitant]
     Active Substance: PREDNISONE
  6. SPIRIVA [Concomitant]
     Active Substance: TIOTROPIUM BROMIDE MONOHYDRATE
  7. MONTELUKAST [Concomitant]
     Active Substance: MONTELUKAST SODIUM

REACTIONS (3)
  - Fatigue [Unknown]
  - Pneumonia [Unknown]
  - Gastrooesophageal reflux disease [Unknown]
